FAERS Safety Report 14772659 (Version 1)
Quarter: 2018Q2

REPORT INFORMATION
  Report Type: Spontaneous
  Country: MY (occurrence: MY)
  Receive Date: 20180418
  Receipt Date: 20180418
  Transmission Date: 20180711
  Serious: Yes (Other)
  Sender: FDA-Public Use
  Company Number: MY-AMGEN-MYSSP2018051683

PATIENT
  Age: 49 Year
  Sex: Female

DRUGS (3)
  1. CALCIUM CARBONATE. [Concomitant]
     Active Substance: CALCIUM CARBONATE
     Dosage: 1000 MG, TDS
     Route: 065
     Dates: start: 2014
  2. REGPARA [Suspect]
     Active Substance: CINACALCET HYDROCHLORIDE
     Indication: PRODUCT USED FOR UNKNOWN INDICATION
     Dosage: 25 MG, QD
     Route: 048
     Dates: start: 20180319, end: 20180405
  3. ONE ALPHA [Concomitant]
     Active Substance: ALFACALCIDOL
     Dosage: 0.75 UNK, PMOL
     Route: 065
     Dates: start: 2014

REACTIONS (2)
  - Oropharyngeal pain [Unknown]
  - Dysphonia [Unknown]

NARRATIVE: CASE EVENT DATE: 20180403
